FAERS Safety Report 4661673-1 (Version None)
Quarter: 2005Q2

REPORT INFORMATION
  Report Type: 
  Country: None (occurrence: None)
  Receive Date: 20050513
  Receipt Date: 20050502
  Transmission Date: 20051028
  Serious: Yes (Hospitalization)
  Sender: FDA-Public Use
  Company Number: FR-BRISTOL-MYERS SQUIBB COMPANY-12954681

PATIENT
  Age: 22 Day
  Sex: Male
  Weight: 4 kg

DRUGS (3)
  1. AMIKACIN [Suspect]
     Indication: INFECTION
     Dates: start: 20041101, end: 20041105
  2. HEPARIN SODIUM [Suspect]
     Dates: start: 20041105
  3. VANCOMYCIN [Suspect]
     Indication: INFECTION
     Dates: start: 20041101, end: 20041115

REACTIONS (2)
  - EOSINOPHILIA [None]
  - NEUTROPENIA [None]
